FAERS Safety Report 9775823 (Version 1)
Quarter: 2013Q4

REPORT INFORMATION
  Report Type: Spontaneous
  Country: US (occurrence: US)
  Receive Date: 20131220
  Receipt Date: 20131220
  Transmission Date: 20140711
  Serious: Yes (Other)
  Sender: FDA-Public Use
  Company Number: US-GLAXOSMITHKLINE-A1053938A

PATIENT
  Age: 52 Year
  Sex: Female

DRUGS (5)
  1. LAMICTAL [Suspect]
     Indication: CONVULSION PROPHYLAXIS
     Dosage: 25MG PER DAY
     Route: 048
     Dates: start: 201305, end: 201309
  2. HORMONE REPLACEMENT THERAPY [Suspect]
     Indication: PRODUCT USED FOR UNKNOWN INDICATION
     Route: 065
  3. OXAZEPAM [Concomitant]
  4. XANAX [Concomitant]
  5. LYRICA [Concomitant]

REACTIONS (4)
  - Haemorrhage [Recovered/Resolved]
  - Metrorrhagia [Recovered/Resolved]
  - Menstrual disorder [Recovered/Resolved]
  - Adnexa uteri pain [Recovered/Resolved]
